FAERS Safety Report 7938000-7 (Version None)
Quarter: 2011Q4

REPORT INFORMATION
  Report Type: 
  Country: None (occurrence: None)
  Receive Date: 20111123
  Receipt Date: 20111117
  Transmission Date: 20120403
  Serious: Yes (Hospitalization, Other)
  Sender: FDA-Public Use
  Company Number: US-ACTELION-A-US2011-46920

PATIENT

DRUGS (2)
  1. TRACLEER [Suspect]
     Indication: PULMONARY ARTERIAL HYPERTENSION
     Dosage: UNK
     Route: 048
     Dates: start: 20050207
  2. OXYGEN [Concomitant]

REACTIONS (7)
  - PULMONARY OEDEMA [None]
  - BRONCHITIS [None]
  - CARDIAC FAILURE CONGESTIVE [None]
  - COLON CANCER [None]
  - ESCHERICHIA URINARY TRACT INFECTION [None]
  - PNEUMONIA ESCHERICHIA [None]
  - PNEUMONIA [None]
